FAERS Safety Report 19590301 (Version 4)
Quarter: 2021Q4

REPORT INFORMATION
  Report Type: Spontaneous
  Country: JP (occurrence: JP)
  Receive Date: 20210721
  Receipt Date: 20211104
  Transmission Date: 20220304
  Serious: Yes (Hospitalization, Other)
  Sender: FDA-Public Use
  Company Number: JP-KYOWAKIRIN-2021AKK012513

PATIENT
  Age: 79 Year
  Sex: Female

DRUGS (17)
  1. PEGFILGRASTIM [Suspect]
     Active Substance: PEGFILGRASTIM
     Indication: Colony stimulating factor therapy
     Dosage: 3.6 MG, QD (3RD COURSE)
     Route: 058
     Dates: start: 20210624, end: 20210624
  2. RITUXIMAB [Concomitant]
     Active Substance: RITUXIMAB
     Indication: Lymphoma
     Dosage: 500 MG, ONCE/4-6 WEEKS
     Route: 042
     Dates: start: 20210422, end: 20210619
  3. CYCLOPHOSPHAMIDE [Concomitant]
     Active Substance: CYCLOPHOSPHAMIDE
     Indication: Lymphoma
     Dosage: 850 MILLIGRAM, QD
     Route: 042
     Dates: start: 20210401, end: 20210401
  4. CYCLOPHOSPHAMIDE [Concomitant]
     Active Substance: CYCLOPHOSPHAMIDE
     Dosage: 600 MILLIGRAM, QD
     Route: 042
     Dates: start: 20210428, end: 20210428
  5. CYCLOPHOSPHAMIDE [Concomitant]
     Active Substance: CYCLOPHOSPHAMIDE
     Dosage: 500 MILLIGRAM, QD
     Route: 042
     Dates: start: 20210620, end: 20210620
  6. DOXORUBICIN HYDROCHLORIDE [Concomitant]
     Active Substance: DOXORUBICIN HYDROCHLORIDE
     Indication: Lymphoma
     Dosage: 55 MILLIGRAM, QD
     Route: 042
     Dates: start: 20210401, end: 20210401
  7. DOXORUBICIN HYDROCHLORIDE [Concomitant]
     Active Substance: DOXORUBICIN HYDROCHLORIDE
     Dosage: 40 MG, ONCE/7 WEEKS
     Route: 042
     Dates: start: 20210428, end: 20210620
  8. ONCOVIN [Concomitant]
     Active Substance: VINCRISTINE SULFATE
     Indication: Lymphoma
     Dosage: 1.5 MILLIGRAM, QD
     Route: 042
     Dates: start: 20210401, end: 20210401
  9. ONCOVIN [Concomitant]
     Active Substance: VINCRISTINE SULFATE
     Dosage: 1 MG, ONCE/7 WEEKS
     Route: 042
     Dates: start: 20210428, end: 20210620
  10. PREDNISOLONE ACETATE [Concomitant]
     Active Substance: PREDNISOLONE ACETATE
     Indication: Lymphoma
     Dosage: 60 MG, QD
     Route: 042
     Dates: start: 20210401, end: 20210405
  11. PREDNISOLONE ACETATE [Concomitant]
     Active Substance: PREDNISOLONE ACETATE
     Dosage: 60 MG, QD
     Route: 042
     Dates: start: 20210428, end: 20210502
  12. PREDNISOLONE ACETATE [Concomitant]
     Active Substance: PREDNISOLONE ACETATE
     Dosage: 60 MG, QD
     Route: 042
     Dates: start: 20210620, end: 20210624
  13. LANSOPRAZOLE [Concomitant]
     Active Substance: LANSOPRAZOLE
     Indication: Gastrooesophageal reflux prophylaxis
     Dosage: 15 MG, QD
     Route: 048
     Dates: start: 20210326
  14. PREGABALIN [Concomitant]
     Active Substance: PREGABALIN
     Indication: Hypoaesthesia
     Dosage: 150 MG, QD
     Route: 048
     Dates: start: 20210326
  15. LEVOTHYROXINE SODIUM [Concomitant]
     Active Substance: LEVOTHYROXINE SODIUM
     Indication: Hypothyroidism
     Dosage: 100 UG, QD
     Route: 048
     Dates: start: 20210326
  16. MAGNESIUM OXIDE [Concomitant]
     Active Substance: MAGNESIUM OXIDE
     Indication: Constipation prophylaxis
     Dosage: 660 MG, TID
     Route: 048
     Dates: start: 20210325
  17. CLONAZEPAM [Concomitant]
     Active Substance: CLONAZEPAM
     Indication: Hypoaesthesia
     Dosage: 0.5 MG, QD
     Route: 048
     Dates: start: 20210409

REACTIONS (1)
  - Cerebral infarction [Recovering/Resolving]

NARRATIVE: CASE EVENT DATE: 20210625
